FAERS Safety Report 25914506 (Version 1)
Quarter: 2025Q4

REPORT INFORMATION
  Report Type: Spontaneous
  Country: US (occurrence: US)
  Receive Date: 20251013
  Receipt Date: 20251013
  Transmission Date: 20260118
  Serious: No
  Sender: MERCK SHARP & DOHME LLC
  Company Number: US-009507513-2338055

PATIENT
  Age: 10 Year
  Sex: Female

DRUGS (4)
  1. DORZOLAMIDE [Suspect]
     Active Substance: DORZOLAMIDE
     Indication: Glaucoma
  2. LATANOPROST [Concomitant]
     Active Substance: LATANOPROST
     Indication: Glaucoma
  3. TIMOLOL [Concomitant]
     Active Substance: TIMOLOL
     Indication: Glaucoma
  4. BRIMONIDINE [Concomitant]
     Active Substance: BRIMONIDINE TARTRATE
     Indication: Glaucoma

REACTIONS (1)
  - Treatment noncompliance [Unknown]
